FAERS Safety Report 4959177-1 (Version None)
Quarter: 2006Q1

REPORT INFORMATION
  Report Type: 
  Country: None (occurrence: None)
  Receive Date: 20060330
  Receipt Date: 20060330
  Transmission Date: 20060701
  Serious: Yes (Death)
  Sender: FDA-Public Use
  Company Number: None

PATIENT
  Sex: Male
  Weight: 69.8539 kg

DRUGS (2)
  1. LOVENOX [Suspect]
     Indication: ANGINA UNSTABLE
     Dosage: 100 MG EVERY 12 HOURS SQ
     Route: 058
     Dates: start: 20060218, end: 20060220
  2. ASPIRIN [Suspect]
     Indication: ANGINA UNSTABLE
     Dosage: 325 MG DAILY PO
     Route: 048
     Dates: start: 20060218, end: 20060220

REACTIONS (3)
  - ANGINA UNSTABLE [None]
  - MUSCLE HAEMORRHAGE [None]
  - RETROPERITONEAL HAEMORRHAGE [None]
